FAERS Safety Report 5099955-4 (Version None)
Quarter: 2006Q3

REPORT INFORMATION
  Report Type: 
  Country: None (occurrence: None)
  Receive Date: 20060908
  Receipt Date: 20060817
  Transmission Date: 20061208
  Serious: Yes (Hospitalization, Other)
  Sender: FDA-Public Use
  Company Number: US-AMGEN-US190299

PATIENT
  Sex: Male
  Weight: 77.2 kg

DRUGS (4)
  1. ENBREL [Suspect]
     Indication: SPONDYLOARTHROPATHY
     Route: 058
     Dates: start: 20041117, end: 20060524
  2. METHOTREXATE [Concomitant]
     Route: 048
     Dates: start: 20031212, end: 20060514
  3. FOLIC ACID [Concomitant]
  4. DAYPRO [Concomitant]

REACTIONS (5)
  - B-CELL LYMPHOMA STAGE I [None]
  - BASAL CELL CARCINOMA [None]
  - CONDITION AGGRAVATED [None]
  - SPONDYLOARTHROPATHY [None]
  - TENDONITIS [None]
